FAERS Safety Report 14906777 (Version 1)
Quarter: 2018Q2

REPORT INFORMATION
  Report Type: Spontaneous
  Country: US (occurrence: US)
  Receive Date: 20180517
  Receipt Date: 20180517
  Transmission Date: 20180711
  Serious: No
  Sender: FDA-Public Use
  Company Number: US-SA-2016SA019305

PATIENT
  Age: 66 Year
  Sex: Male

DRUGS (9)
  1. LANTUS SOLOSTAR [Suspect]
     Active Substance: INSULIN GLARGINE
     Indication: DIABETES MELLITUS
     Dosage: DOSE^ 30-35 U
     Route: 065
     Dates: start: 2014
  2. SOLOSTAR [Concomitant]
     Active Substance: DEVICE
     Dates: start: 2014
  3. BRILINTA [Concomitant]
     Active Substance: TICAGRELOR
  4. LANTUS SOLOSTAR [Suspect]
     Active Substance: INSULIN GLARGINE
     Indication: DIABETES MELLITUS
     Dosage: INCREASED 10 UNIT INCREMENTS TO 60 DOSE:60 UNIT(S)
     Route: 065
  5. BRILINTA [Concomitant]
     Active Substance: TICAGRELOR
     Dates: start: 2013
  6. NOVOLOG [Concomitant]
     Active Substance: INSULIN ASPART
     Dosage: 18-20 UNITS MORNING, LUNCH, AND DINNER
  7. PREDNISONE. [Concomitant]
     Active Substance: PREDNISONE
  8. LANTUS SOLOSTAR [Suspect]
     Active Substance: INSULIN GLARGINE
     Indication: DIABETES MELLITUS
     Dosage: INCREASED 10 UNIT INCREMENTS TO 60 DOSE:60 UNIT(S)
     Route: 065
  9. LANTUS SOLOSTAR [Suspect]
     Active Substance: INSULIN GLARGINE
     Indication: DIABETES MELLITUS
     Dosage: DOSE^ 30-35 U
     Route: 065
     Dates: start: 2014

REACTIONS (2)
  - Blood glucose increased [Unknown]
  - Blood glucose decreased [Unknown]
